FAERS Safety Report 24356687 (Version 3)
Quarter: 2024Q4

REPORT INFORMATION
  Report Type: Spontaneous
  Country: DE (occurrence: DE)
  Receive Date: 20240924
  Receipt Date: 20241015
  Transmission Date: 20250114
  Serious: Yes (Life-Threatening, Hospitalization, Other)
  Sender: AUROBINDO
  Company Number: DE-BFARM-24006388

PATIENT
  Age: 43 Year
  Sex: Female
  Weight: 84.8 kg

DRUGS (6)
  1. CARBOPLATIN [Suspect]
     Active Substance: CARBOPLATIN
     Indication: Triple negative breast cancer
     Dosage: 12 DOSAGE FORM, EVERY WEEK EVERY WEEK  (A TOTAL OF 12 X WEEKLY DOSES)
     Route: 042
     Dates: start: 202312
  2. EPIRUBICIN [Suspect]
     Active Substance: EPIRUBICIN
     Indication: Product used for unknown indication
     Dosage: 1 DOSAGE FORM
     Route: 065
     Dates: start: 202403, end: 202406
  3. PACLITAXEL [Suspect]
     Active Substance: PACLITAXEL
     Indication: Triple negative breast cancer
     Dosage: 1 DOSAGE FORM (GIVEN A TOTAL OF 12 TIMES PER WEEK)
     Route: 042
     Dates: start: 202312, end: 202312
  4. PACLITAXEL [Suspect]
     Active Substance: PACLITAXEL
     Dosage: UNK GIVEN A TOTAL OF 12 TIMES PER WEEK
     Route: 042
     Dates: start: 202312, end: 202403
  5. CYCLOPHOSPHAMIDE\EPIRUBICIN [Suspect]
     Active Substance: CYCLOPHOSPHAMIDE\EPIRUBICIN
     Indication: Triple negative breast cancer
     Dosage: UNK (A TOTAL OF 4 TIMES)
     Route: 042
     Dates: start: 202303
  6. KEYTRUDA [Suspect]
     Active Substance: PEMBROLIZUMAB
     Indication: Triple negative breast cancer
     Dosage: 16 DOSAGE FORM (A TOTAL OF 16 TIMES)
     Route: 042
     Dates: start: 202312

REACTIONS (3)
  - Nephrotic syndrome [Not Recovered/Not Resolved]
  - Renal impairment [Not Recovered/Not Resolved]
  - Renal failure [Unknown]

NARRATIVE: CASE EVENT DATE: 20240714
